FAERS Safety Report 9768230 (Version 1)
Quarter: 2013Q4

REPORT INFORMATION
  Report Type: Spontaneous
  Country: US (occurrence: US)
  Receive Date: 20131217
  Receipt Date: 20131217
  Transmission Date: 20140711
  Serious: Yes (Other)
  Sender: FDA-Public Use
  Company Number: US-PFIZER INC-2013358425

PATIENT
  Sex: Male

DRUGS (8)
  1. MORPHINE SULFATE [Suspect]
     Dosage: UNK
  2. XANAX [Suspect]
     Dosage: UNK
  3. ADDERALL [Suspect]
     Dosage: UNK
  4. AMBIEN [Suspect]
     Dosage: UNK
  5. KLONOPIN [Suspect]
     Dosage: UNK
  6. PERCOCET [Suspect]
     Dosage: UNK
  7. SUBOXONE [Suspect]
     Dosage: UNK
  8. KETAMINE [Suspect]
     Dosage: UNK

REACTIONS (2)
  - Drug abuse [Recovering/Resolving]
  - Drug dependence [Recovering/Resolving]
